FAERS Safety Report 4516221-3 (Version None)
Quarter: 2004Q4

REPORT INFORMATION
  Report Type: 
  Country: None (occurrence: None)
  Receive Date: 20041005
  Receipt Date: 20031030
  Transmission Date: 20050328
  Serious: Yes (Other)
  Sender: FDA-Public Use
  Company Number: US-JNJFOC-20031006767

PATIENT
  Age: 6 Year
  Sex: Female
  Weight: 25.4014 kg

DRUGS (1)
  1. CONCERTA [Suspect]
     Indication: ATTENTION DEFICIT/HYPERACTIVITY DISORDER
     Dosage: ORAL;  45 MG, ORAL
     Route: 048
     Dates: start: 20010101

REACTIONS (1)
  - AGGRESSION [None]
